FAERS Safety Report 6397403-5 (Version None)
Quarter: 2009Q4

REPORT INFORMATION
  Report Type: 
  Country: None (occurrence: None)
  Receive Date: 20091012
  Receipt Date: 20090930
  Transmission Date: 20100525
  Serious: Yes (Hospitalization)
  Sender: FDA-Public Use
  Company Number: PHHY2009AR42402

PATIENT
  Age: 70 Year
  Sex: Female

DRUGS (2)
  1. EXFORGE [Suspect]
     Indication: HYPERTENSION
     Dosage: 1 DF (160/5 MG) DAILY
     Dates: start: 20090801
  2. CLOPIDOGREL [Concomitant]

REACTIONS (3)
  - ANGIOPLASTY [None]
  - CORONARY ARTERIAL STENT INSERTION [None]
  - URTICARIA [None]
